FAERS Safety Report 7266911-7 (Version None)
Quarter: 2011Q1

REPORT INFORMATION
  Report Type: 
  Country: None (occurrence: None)
  Receive Date: 20110201
  Receipt Date: 20110124
  Transmission Date: 20110831
  Serious: Yes (Death)
  Sender: FDA-Public Use
  Company Number: CA-ELI_LILLY_AND_COMPANY-CA201101005604

PATIENT
  Sex: Male

DRUGS (15)
  1. CLONAZEPAM [Concomitant]
     Dosage: 2 MG, 2/D
  2. RAMIPRIL [Concomitant]
     Dosage: 2.5 MG, DAILY (1/D)
  3. WELLBUTRIN [Concomitant]
     Dosage: 150 MG, DAILY (1/D)
  4. ZYPREXA ZYDIS [Suspect]
     Dosage: 5 MG, 2/D
  5. BISOPROLOL [Concomitant]
     Dosage: 5 MG, DAILY (1/D)
  6. PAROXETINE HCL [Concomitant]
     Dosage: 20 MG, UNK
  7. HYDROCHLOROTHIAZDE TAB [Concomitant]
     Dosage: 25 MG, EACH MORNING
  8. XENICAL [Concomitant]
     Dosage: 120 MG, 3/D
  9. ZYPREXA ZYDIS [Suspect]
     Dosage: 15 MG, DAILY (1/D)
  10. ZYPREXA [Suspect]
     Dosage: 15 MG, DAILY (1/D)
  11. ATIVAN [Concomitant]
     Dosage: 2 MG, EVERY 8 HRS
  12. CITALOPRAM HYDROBROMIDE [Concomitant]
     Dosage: 20 MG, EACH EVENING
  13. ZYPREXA [Suspect]
     Dosage: 5 MG, 2/D
  14. CRESTOR [Concomitant]
     Dosage: 10 MG, DAILY (1/D)
  15. SIMVASTATIN [Concomitant]
     Dosage: 40 MG, EACH EVENING

REACTIONS (4)
  - DEATH [None]
  - DIABETES MELLITUS [None]
  - HYPERGLYCAEMIA [None]
  - OVERDOSE [None]
